FAERS Safety Report 15012212 (Version 1)
Quarter: 2018Q2

REPORT INFORMATION
  Report Type: Spontaneous
  Country: US (occurrence: US)
  Receive Date: 20180614
  Receipt Date: 20180614
  Transmission Date: 20180711
  Serious: Yes (Hospitalization)
  Sender: FDA-Public Use
  Company Number: US-VERTEX PHARMACEUTICALS-2018-003764

PATIENT
  Sex: Male

DRUGS (12)
  1. CREON [Concomitant]
     Active Substance: PANCRELIPASE AMYLASE\PANCRELIPASE LIPASE\PANCRELIPASE PROTEASE
  2. ORKAMBI [Suspect]
     Active Substance: IVACAFTOR\LUMACAFTOR
     Indication: CYSTIC FIBROSIS
     Dosage: UNK
     Route: 048
  3. URSODIOL. [Concomitant]
     Active Substance: URSODIOL
  4. OMEPRAZOLE. [Concomitant]
     Active Substance: OMEPRAZOLE
  5. AMIKACIN. [Concomitant]
     Active Substance: AMIKACIN
  6. CLONAZEPAM. [Concomitant]
     Active Substance: CLONAZEPAM
  7. ERYTHROMYCIN. [Concomitant]
     Active Substance: ERYTHROMYCIN
  8. CYPROHEPTADINE. [Concomitant]
     Active Substance: CYPROHEPTADINE
  9. ZOFRAN [Concomitant]
     Active Substance: ONDANSETRON HYDROCHLORIDE
  10. ALBUTEROL                          /00139501/ [Concomitant]
     Active Substance: ALBUTEROL
  11. PULMOZYME [Concomitant]
     Active Substance: DORNASE ALFA
  12. VITAMIN D                          /00107901/ [Concomitant]
     Active Substance: ERGOCALCIFEROL

REACTIONS (1)
  - Cystic fibrosis respiratory infection suppression [Unknown]

NARRATIVE: CASE EVENT DATE: 2018
